FAERS Safety Report 7367219-1 (Version None)
Quarter: 2011Q1

REPORT INFORMATION
  Report Type: 
  Country: None (occurrence: None)
  Receive Date: 20110322
  Receipt Date: 20110318
  Transmission Date: 20110831
  Serious: Yes (Death, Other)
  Sender: FDA-Public Use
  Company Number: FR-PFIZER INC-2011032148

PATIENT
  Age: 57 Year
  Sex: Female

DRUGS (4)
  1. SPASFON [Concomitant]
     Indication: PAIN
     Dosage: UNKNOWN; AS NEEDED
  2. ACETAMINOPHEN AND TRAMADOL HCL [Concomitant]
     Indication: PAIN
     Dosage: UNKNOWN; AS NEEDED
  3. REVATIO [Suspect]
     Indication: PULMONARY ARTERIAL HYPERTENSION
     Dosage: 20 MG, 3X/DAY
     Route: 048
  4. AMBRISENTAN [Suspect]
     Indication: PULMONARY ARTERIAL HYPERTENSION
     Dosage: UNKNOWN

REACTIONS (5)
  - DEATH [None]
  - PULMONARY HYPERTENSION [None]
  - OEDEMA PERIPHERAL [None]
  - NEOPLASM MALIGNANT [None]
  - ANAEMIA [None]
